FAERS Safety Report 20491230 (Version 1)
Quarter: 2022Q1

REPORT INFORMATION
  Report Type: Report from Study
  Country: US (occurrence: US)
  Receive Date: 20220218
  Receipt Date: 20220218
  Transmission Date: 20220423
  Serious: No
  Sender: FDA-Public Use
  Company Number: US-MIRM-000231

PATIENT
  Age: 2 Year
  Sex: Male
  Weight: 10.886 kg

DRUGS (5)
  1. LIVMARLI [Suspect]
     Active Substance: MARALIXIBAT CHLORIDE
     Indication: Pruritus
     Route: 048
     Dates: start: 20211029
  2. 1328139 (GLOBALC3Sep19): Rifampin [Concomitant]
     Indication: Product used for unknown indication
  3. 2930039 (GLOBALC3Sep19): Hydroxyzine [Concomitant]
     Indication: Product used for unknown indication
  4. 3641461 (GLOBALC3Sep19): Aquadeks Vitamin [Concomitant]
  5. 1328777 (GLOBALC3Sep19): Ursodiol [Concomitant]
     Indication: Product used for unknown indication

REACTIONS (4)
  - Change of bowel habit [Unknown]
  - Diarrhoea [Unknown]
  - Pruritus [Unknown]
  - Pruritus [Unknown]
